FAERS Safety Report 7732898-3 (Version None)
Quarter: 2011Q3

REPORT INFORMATION
  Report Type: 
  Country: None (occurrence: None)
  Receive Date: 20110907
  Receipt Date: 20110825
  Transmission Date: 20111222
  Serious: Yes (Other)
  Sender: FDA-Public Use
  Company Number: DE-JNJFOC-20110811510

PATIENT

DRUGS (1)
  1. INFLIXIMAB, RECOMBINANT [Suspect]
     Indication: ANKYLOSING SPONDYLITIS
     Route: 042

REACTIONS (5)
  - PANCREATITIS [None]
  - HYPERSENSITIVITY [None]
  - TUBERCULOSIS [None]
  - PULMONARY GRANULOMA [None]
  - GENERAL PHYSICAL HEALTH DETERIORATION [None]
